FAERS Safety Report 9597615 (Version 1)
Quarter: 2013Q4

REPORT INFORMATION
  Report Type: Spontaneous
  Country: US (occurrence: US)
  Receive Date: 20131004
  Receipt Date: 20131004
  Transmission Date: 20140711
  Serious: No
  Sender: FDA-Public Use
  Company Number: US-AMGEN-USASP2013020092

PATIENT
  Age: 51 Year
  Sex: Female
  Weight: 63.49 kg

DRUGS (27)
  1. ENBREL [Suspect]
     Indication: PRODUCT USED FOR UNKNOWN INDICATION
     Dosage: 50 MG, QWK
     Route: 058
  2. ORENCIA [Concomitant]
     Dosage: 125 MG/ML, UNK
  3. MAXALT                             /01406501/ [Concomitant]
     Dosage: 5 MG, UNK
  4. PROTONIX [Concomitant]
     Dosage: 20 MG, UNK
  5. OXYCODONE/APAP                     /00867901/ [Concomitant]
     Dosage: 5-500 MG, UNK
  6. PREDNISONE [Concomitant]
     Dosage: 1 MG, UNK
  7. CARAFATE [Concomitant]
     Dosage: 1 MG, UNK
  8. LISINOPRIL [Concomitant]
     Dosage: 2.5 MG, UNK
  9. CYCLOBENZAPRINE [Concomitant]
     Dosage: 10 MG, UNK
  10. ACYCLOVIR                          /00587301/ [Concomitant]
     Dosage: 400 MG, UNK
  11. PROMETHAZINE [Concomitant]
     Dosage: 25 MG, UNK
  12. DIAZEPAM [Concomitant]
     Dosage: 2 MG, UNK
  13. FLONASE [Concomitant]
     Dosage: SPRAY
  14. VERAPAMIL [Concomitant]
     Dosage: 120 MG, UNK
  15. ALBUTEROL                          /00139501/ [Concomitant]
     Dosage: 2 MG, UNK
  16. TRIAMTERENE/HCTZ [Concomitant]
     Dosage: 37.5-25, UNK
  17. OXYCODON [Concomitant]
     Dosage: 5 MG, UNK
  18. LEXAPRO [Concomitant]
     Dosage: 10 MG, UNK
  19. ZANTAC [Concomitant]
     Dosage: 75 UNK, UNK
  20. OMEGA-3                            /01866101/ [Concomitant]
     Dosage: UNK
  21. CALCIUM 600 + D [Concomitant]
     Dosage: UNK
  22. MULTIVITAMINS, PLAIN [Concomitant]
     Dosage: UNK
  23. COLACE [Concomitant]
     Dosage: 100 MG, UNK
  24. FLOVENT [Concomitant]
     Dosage: 110 MUG, AER
  25. SIMETHICONE [Concomitant]
     Dosage: 80 MG, UNK
  26. VALACYCLOVIR HCL [Concomitant]
     Dosage: 500 MG, UNK
  27. DHEA [Concomitant]
     Dosage: 10 MG, UNK

REACTIONS (6)
  - Drug hypersensitivity [Unknown]
  - Photosensitivity reaction [Unknown]
  - Herpes zoster [Unknown]
  - Pneumonia [Unknown]
  - Candida infection [Unknown]
  - Urticaria [Unknown]
